FAERS Safety Report 7379848-X (Version None)
Quarter: 2011Q1

REPORT INFORMATION
  Report Type: 
  Country: None (occurrence: None)
  Receive Date: 20110329
  Receipt Date: 20110323
  Transmission Date: 20110831
  Serious: No
  Sender: FDA-Public Use
  Company Number: US-PFIZER INC-2011059551

PATIENT
  Sex: Female
  Weight: 72.562 kg

DRUGS (6)
  1. AZITHROMYCIN [Suspect]
     Indication: NASOPHARYNGITIS
     Dosage: UNK MG, UNK
     Route: 048
     Dates: start: 20100801, end: 20100801
  2. AZITHROMYCIN [Suspect]
     Dosage: 250 MG, UNK
     Route: 048
     Dates: start: 20100806
  3. ESTRADIOL [Concomitant]
     Indication: HORMONE REPLACEMENT THERAPY
     Dosage: UNK
  4. PROGESTERONE [Concomitant]
     Dosage: UNK
  5. ZITHROMAX [Suspect]
  6. DOXYCYCLINE [Suspect]

REACTIONS (23)
  - INTERVERTEBRAL DISC DEGENERATION [None]
  - GASTRITIS [None]
  - GASTRIC POLYPS [None]
  - MUSCLE SPASMS [None]
  - ANXIETY [None]
  - MIGRAINE [None]
  - DYSPHAGIA [None]
  - VISUAL IMPAIRMENT [None]
  - PALPITATIONS [None]
  - SINUS HEADACHE [None]
  - DRUG INEFFECTIVE [None]
  - ABDOMINAL PAIN [None]
  - PAIN [None]
  - BLOOD CHOLESTEROL INCREASED [None]
  - JOINT CREPITATION [None]
  - DYSPNOEA [None]
  - FOOD ALLERGY [None]
  - FEELING ABNORMAL [None]
  - DYSTONIA [None]
  - HEARING IMPAIRED [None]
  - INSOMNIA [None]
  - WEIGHT DECREASED [None]
  - EYE PAIN [None]
